FAERS Safety Report 7189235-5 (Version None)
Quarter: 2010Q4

REPORT INFORMATION
  Report Type: 
  Country: None (occurrence: None)
  Receive Date: 20101222
  Receipt Date: 20101215
  Transmission Date: 20110411
  Serious: Yes (Hospitalization)
  Sender: FDA-Public Use
  Company Number: US-US-EMD SERONO, INC.-7018268

PATIENT
  Sex: Female

DRUGS (2)
  1. REBIF [Suspect]
     Indication: PRODUCT USED FOR UNKNOWN INDICATION
     Route: 058
     Dates: start: 20081016, end: 20100101
  2. REBIF [Suspect]
     Route: 058
     Dates: start: 20100101

REACTIONS (7)
  - ABNORMAL LOSS OF WEIGHT [None]
  - CHEST DISCOMFORT [None]
  - CHEST PAIN [None]
  - DEPRESSION [None]
  - PAIN IN EXTREMITY [None]
  - PANIC ATTACK [None]
  - PERICARDIAL EFFUSION [None]
